FAERS Safety Report 6814343-5 (Version None)
Quarter: 2010Q3

REPORT INFORMATION
  Report Type: 
  Country: None (occurrence: None)
  Receive Date: 20100702
  Receipt Date: 20100628
  Transmission Date: 20110219
  Serious: Yes (Hospitalization)
  Sender: FDA-Public Use
  Company Number: FR-BAXTER-2010BH013340

PATIENT
  Age: 4 Year
  Sex: Male
  Weight: 18 kg

DRUGS (2)
  1. GAMMAGARD LIQUID [Suspect]
     Indication: LANGERHANS' CELL HISTIOCYTOSIS
     Route: 042
     Dates: start: 20100512, end: 20100512
  2. GAMMAGARD LIQUID [Suspect]
     Indication: OFF LABEL USE
     Route: 042
     Dates: start: 20100512, end: 20100512

REACTIONS (5)
  - CHILLS [None]
  - HEADACHE [None]
  - LIVEDO RETICULARIS [None]
  - PYREXIA [None]
  - TREMOR [None]
